FAERS Safety Report 10206336 (Version 1)
Quarter: 2014Q2

REPORT INFORMATION
  Report Type: Report from Study
  Country: LB (occurrence: LB)
  Receive Date: 20140530
  Receipt Date: 20140530
  Transmission Date: 20141212
  Serious: Yes (Death, Other)
  Sender: FDA-Public Use
  Company Number: PHHY2014LB065936

PATIENT
  Age: 76 Year
  Sex: Female

DRUGS (6)
  1. ACLASTA [Suspect]
     Dosage: UNK UKN, UNK
     Route: 042
  2. ACLASTA [Suspect]
     Dosage: UNK UKN, UNK
     Route: 042
  3. ACLASTA [Suspect]
     Dosage: UNK UKN, UNK
     Route: 042
  4. GLIBOMET [Concomitant]
     Dosage: 1 DF, UNK
     Route: 048
  5. CONCOR [Concomitant]
     Dosage: 5 MG, UNK
     Route: 048
  6. ASPIRIN [Concomitant]
     Dosage: 100 MG, UNK
     Route: 048

REACTIONS (2)
  - Death [Fatal]
  - Dyspnoea [Unknown]
